FAERS Safety Report 8901648 (Version 1)
Quarter: 2012Q4

REPORT INFORMATION
  Report Type: Spontaneous
  Country: US (occurrence: None)
  Receive Date: 20121031
  Receipt Date: 20121031
  Transmission Date: 20130627
  Serious: Yes (Other)
  Sender: FDA-Public Use
  Company Number: DSA_60329_2012

PATIENT
  Sex: Female
  Weight: 83.46 kg

DRUGS (3)
  1. XENAZINE 12.5 MG (NOT SPECIFIED) [Suspect]
     Indication: TREMOR
     Route: 048
     Dates: start: 2012, end: 2012
  2. XENAZINE 12.5 MG (NOT SPECIFIED) [Suspect]
     Indication: TREMOR
     Route: 048
     Dates: start: 2012
  3. ARTANE [Concomitant]

REACTIONS (3)
  - Mood swings [None]
  - Crying [None]
  - Convulsion [None]
